FAERS Safety Report 10308181 (Version 2)
Quarter: 2014Q3

REPORT INFORMATION
  Report Type: Spontaneous
  Country: US (occurrence: US)
  Receive Date: 20140716
  Receipt Date: 20140819
  Transmission Date: 20150326
  Serious: Yes (Other)
  Sender: FDA-Public Use
  Company Number: US-JNJFOC-20140706617

PATIENT
  Age: 37 Year
  Sex: Female

DRUGS (3)
  1. DULOXETINE [Concomitant]
     Active Substance: DULOXETINE
     Route: 065
  2. LEVOTHYROXINE [Concomitant]
     Active Substance: LEVOTHYROXINE
     Route: 065
  3. TRAMADOL HYDROCHLORIDE. [Suspect]
     Active Substance: TRAMADOL HYDROCHLORIDE
     Indication: PRODUCT USED FOR UNKNOWN INDICATION
     Dosage: 100-200 MG DAILY, LESS THAN THE MAXIMUM 300 MG DAILY
     Route: 065

REACTIONS (1)
  - Sleep apnoea syndrome [Recovering/Resolving]
